FAERS Safety Report 21433832 (Version 4)
Quarter: 2022Q4

REPORT INFORMATION
  Report Type: Report from Study
  Country: US (occurrence: US)
  Receive Date: 20221010
  Receipt Date: 20221119
  Transmission Date: 20230112
  Serious: Yes (Hospitalization, Other)
  Sender: FDA-Public Use
  Company Number: US-NOVARTISPH-NVSC2022US224701

PATIENT
  Sex: Female

DRUGS (1)
  1. ENTRESTO [Suspect]
     Active Substance: SACUBITRIL\VALSARTAN
     Indication: Cardiac failure
     Dosage: 1 DOSAGE FORM, BID
     Route: 048
     Dates: start: 20220730

REACTIONS (14)
  - Nausea [Recovered/Resolved]
  - Complication associated with device [Recovered/Resolved]
  - Nausea [Unknown]
  - Weight decreased [Unknown]
  - Cognitive disorder [Unknown]
  - Memory impairment [Unknown]
  - Blood pressure increased [Unknown]
  - Chest pain [Recovered/Resolved]
  - Pain in extremity [Recovered/Resolved]
  - Heart rate increased [Recovered/Resolved]
  - Dizziness postural [Unknown]
  - Cardiospasm [Recovering/Resolving]
  - Dyspnoea [Recovering/Resolving]
  - Depressed mood [Unknown]

NARRATIVE: CASE EVENT DATE: 20220101
